FAERS Safety Report 16107773 (Version 4)
Quarter: 2019Q2

REPORT INFORMATION
  Report Type: Report from Study
  Country: DE (occurrence: DE)
  Receive Date: 20190322
  Receipt Date: 20190416
  Transmission Date: 20190711
  Serious: Yes (Other)
  Sender: FDA-Public Use
  Company Number: DE-PFIZER INC-2019123287

PATIENT
  Age: 68 Year
  Sex: Female
  Weight: 68 kg

DRUGS (3)
  1. IRON [Concomitant]
     Active Substance: IRON
     Dosage: UNK
     Route: 065
     Dates: start: 201811
  2. TORASEMID [Suspect]
     Active Substance: TORSEMIDE
     Dosage: 10 MG, DAILY
     Route: 048
     Dates: start: 201809
  3. PANTOPRAZOLE [Suspect]
     Active Substance: PANTOPRAZOLE
     Dosage: UNK
     Route: 065

REACTIONS (8)
  - Skin disorder [Unknown]
  - Muscular weakness [Unknown]
  - Limb discomfort [Unknown]
  - Myalgia [Unknown]
  - Deep vein thrombosis [Unknown]
  - Feeling hot [Unknown]
  - Peripheral swelling [Unknown]
  - Pain in extremity [Unknown]

NARRATIVE: CASE EVENT DATE: 20181206
